APPROVED DRUG PRODUCT: METHYLPHENIDATE HYDROCHLORIDE
Active Ingredient: METHYLPHENIDATE HYDROCHLORIDE
Strength: 27MG
Dosage Form/Route: TABLET, EXTENDED RELEASE;ORAL
Application: A091695 | Product #002 | TE Code: BX
Applicant: LANNETT CO INC
Approved: Jul 9, 2013 | RLD: No | RS: No | Type: RX